FAERS Safety Report 17722330 (Version 1)
Quarter: 2020Q2

REPORT INFORMATION
  Report Type: Report from Study
  Country: ES (occurrence: ES)
  Receive Date: 20200429
  Receipt Date: 20200429
  Transmission Date: 20200714
  Serious: Yes (Hospitalization)
  Sender: FDA-Public Use
  Company Number: ES-TEVA-2020-ES-1227330

PATIENT
  Age: 62 Year
  Sex: Male

DRUGS (4)
  1. CELLCEPT [Suspect]
     Active Substance: MYCOPHENOLATE MOFETIL\MYCOPHENOLATE MOFETIL HYDROCHLORIDE
     Indication: ACUTE GRAFT VERSUS HOST DISEASE
     Dosage: 3 DOSAGE FORMS DAILY; 1-1-1
     Route: 048
     Dates: start: 20181114, end: 20181128
  2. PIPERTAZO 4 G/0,5 G POLVO PARA SOLUCION PARA PERFUSION [Suspect]
     Active Substance: PIPERACILLIN SODIUM\TAZOBACTAM SODIUM
     Dosage: C/6H, 1 DOSAGE FORMS 6 HOURS
     Route: 065
     Dates: start: 20181114, end: 20181128
  3. VALGANCICLOVIR (2861A) [Suspect]
     Active Substance: VALGANCICLOVIR
     Dosage: 800 MILLIGRAM DAILY;
     Route: 048
     Dates: start: 20180401, end: 20180423
  4. SOLTRIM [Suspect]
     Active Substance: SULFAMETHOXAZOLE\TRIMETHOPRIM
     Dosage: 1-0-1
     Route: 042
     Dates: start: 20181114, end: 20181128

REACTIONS (3)
  - Meningitis viral [Recovered/Resolved]
  - Hepatic failure [Recovered/Resolved]
  - Meningitis aseptic [Recovered/Resolved]

NARRATIVE: CASE EVENT DATE: 20180423
